FAERS Safety Report 24018898 (Version 1)
Quarter: 2024Q2

REPORT INFORMATION
  Report Type: Spontaneous
  Country: US (occurrence: None)
  Receive Date: 20240626
  Receipt Date: 20240626
  Transmission Date: 20240716
  Serious: Yes (Other)
  Sender: FDA-Public Use
  Company Number: None

PATIENT
  Sex: Female

DRUGS (11)
  1. KISQALI [Suspect]
     Active Substance: RIBOCICLIB
     Indication: Breast cancer female
     Dosage: FREQ: TAKE 3 TABLETS (600 MG) BY MOUTH EVERY MORNING ON DAYS 1 THRU 21 OF A 28 DAY CYCLE?
     Route: 048
     Dates: start: 20220512
  2. BUPROPION HYDROCHLORIDE [Concomitant]
     Active Substance: BUPROPION HYDROCHLORIDE
  3. CARVEDILOL [Concomitant]
     Active Substance: CARVEDILOL
  4. EXEMESTANE [Concomitant]
     Active Substance: EXEMESTANE
  5. FLOVENT HFA [Concomitant]
     Active Substance: FLUTICASONE PROPIONATE
  6. GABAPENTIN [Concomitant]
     Active Substance: GABAPENTIN
  7. IBRANCE [Concomitant]
     Active Substance: PALBOCICLIB
  8. IBUPROFEN [Concomitant]
     Active Substance: IBUPROFEN
  9. LISINOPRIL [Concomitant]
     Active Substance: LISINOPRIL
  10. OXYCODONE AND ACETAMINOPHEN [Concomitant]
     Active Substance: ACETAMINOPHEN\OXYCODONE HYDROCHLORIDE
  11. VENLAFAXINE [Concomitant]
     Active Substance: VENLAFAXINE HYDROCHLORIDE

REACTIONS (3)
  - Somnolence [None]
  - Product dose omission issue [None]
  - Malignant neoplasm progression [None]
